FAERS Safety Report 16498981 (Version 1)
Quarter: 2019Q2

REPORT INFORMATION
  Report Type: Spontaneous
  Country: US (occurrence: US)
  Receive Date: 20190630
  Receipt Date: 20190630
  Transmission Date: 20190711
  Serious: No
  Sender: FDA-Public Use
  Company Number: US-TEVA-2019-US-1064290

PATIENT
  Age: 63 Year
  Sex: Female

DRUGS (2)
  1. HYDROXYCHLOROQUINE [Suspect]
     Active Substance: HYDROXYCHLOROQUINE
     Indication: FATIGUE
     Dosage: OBTAINED FROM LOCAL PHARMACY, WHICH CONTAINED THE EXCIPIENT MICROCRYSTALLINE CELLULOSE OBTAINED F...
     Route: 065
  2. HYDROXYCHLOROQUINE [Suspect]
     Active Substance: HYDROXYCHLOROQUINE
     Indication: ARTHRALGIA

REACTIONS (4)
  - Reaction to excipient [Unknown]
  - Malaise [Unknown]
  - Urticaria [Unknown]
  - Flushing [Unknown]
